FAERS Safety Report 13905752 (Version 3)
Quarter: 2017Q4

REPORT INFORMATION
  Report Type: Spontaneous
  Country: US (occurrence: US)
  Receive Date: 20170825
  Receipt Date: 20171106
  Transmission Date: 20180320
  Serious: Yes (Other)
  Sender: FDA-Public Use
  Company Number: US-GLAXOSMITHKLINE-US2017130486

PATIENT
  Sex: Female

DRUGS (5)
  1. VENTOLIN HFA [Suspect]
     Active Substance: ALBUTEROL SULFATE
     Indication: LUNG DISORDER
     Dosage: 2 PUFF(S), PRN
     Route: 055
     Dates: start: 201510
  2. ADVAIR DISKUS [Suspect]
     Active Substance: FLUTICASONE PROPIONATE\SALMETEROL XINAFOATE
     Indication: PRODUCT USED FOR UNKNOWN INDICATION
  3. ALBUTEROL. [Concomitant]
     Active Substance: ALBUTEROL
  4. BREO ELLIPTA [Suspect]
     Active Substance: FLUTICASONE FUROATE\VILANTEROL TRIFENATATE
     Indication: LUNG DISORDER
     Dosage: 1 PUFF(S), QD
     Route: 055
     Dates: start: 201708
  5. PREDNISONE. [Concomitant]
     Active Substance: PREDNISONE

REACTIONS (21)
  - Intercepted medication error [Unknown]
  - Therapeutic response unexpected [Unknown]
  - Product quality issue [Unknown]
  - Ill-defined disorder [Unknown]
  - Drug ineffective [Unknown]
  - Fungal infection [Unknown]
  - Immunodeficiency [Unknown]
  - Breast neoplasm [Recovered/Resolved]
  - Therapeutic response decreased [Unknown]
  - Pyrexia [Unknown]
  - Blastomycosis [Unknown]
  - Dyspnoea [Unknown]
  - Product use in unapproved indication [Unknown]
  - Infection susceptibility increased [Unknown]
  - Infectious disease carrier [Unknown]
  - Unevaluable event [Unknown]
  - Inflammatory carcinoma of the breast [Unknown]
  - Breast pain [Recovered/Resolved]
  - Sepsis [Unknown]
  - Overdose [Unknown]
  - Pneumonia [Unknown]
